FAERS Safety Report 5697306-5 (Version None)
Quarter: 2008Q2

REPORT INFORMATION
  Report Type: 
  Country: None (occurrence: None)
  Receive Date: 20080408
  Receipt Date: 20070802
  Transmission Date: 20081010
  Serious: No
  Sender: FDA-Public Use
  Company Number: US-BAYER-US-2007-032566

PATIENT
  Age: 40 Year
  Sex: Female
  Weight: 50 kg

DRUGS (2)
  1. YASMIN [Suspect]
     Route: 048
     Dates: start: 20010101, end: 20050101
  2. NEURONTIN [Concomitant]
     Indication: PHANTOM PAIN

REACTIONS (1)
  - MOOD SWINGS [None]
